FAERS Safety Report 20539174 (Version 1)
Quarter: 2022Q1

REPORT INFORMATION
  Report Type: Spontaneous
  Country: CA (occurrence: CA)
  Receive Date: 20220302
  Receipt Date: 20220302
  Transmission Date: 20220423
  Serious: Yes (Other)
  Sender: FDA-Public Use
  Company Number: CA-JNJFOC-20210935272

PATIENT
  Age: 50 Year
  Sex: Female
  Weight: 80 kg

DRUGS (12)
  1. INFLIXIMAB [Suspect]
     Active Substance: INFLIXIMAB
     Indication: Crohn^s disease
     Route: 042
  2. ACETAMINOPHEN [Concomitant]
     Active Substance: ACETAMINOPHEN
  3. ACETAMINOPHEN\CODEINE PHOSPHATE [Concomitant]
     Active Substance: ACETAMINOPHEN\CODEINE PHOSPHATE
  4. BENADRYL [Concomitant]
     Active Substance: DIPHENHYDRAMINE HYDROCHLORIDE
     Indication: Premedication
  5. CIPROFLOXACIN [Concomitant]
     Active Substance: CIPROFLOXACIN
     Route: 048
  6. HYDROCORTISONE [Concomitant]
     Active Substance: HYDROCORTISONE
     Indication: Premedication
  7. LEVOMEPROMAZINE MALEATE [Concomitant]
     Active Substance: LEVOMEPROMAZINE MALEATE
  8. METRONIDAZOLE [Concomitant]
     Active Substance: METRONIDAZOLE
  9. METRONIDAZOLE [Concomitant]
     Active Substance: METRONIDAZOLE
  10. NABILONE [Concomitant]
     Active Substance: NABILONE
     Route: 048
  11. QUETIAPINE FUMARATE [Concomitant]
     Active Substance: QUETIAPINE FUMARATE
     Route: 048
  12. PYRIDOXINE\TRYPTOPHAN [Concomitant]
     Active Substance: PYRIDOXINE\TRYPTOPHAN
     Route: 048

REACTIONS (9)
  - Renal pain [Unknown]
  - Tachycardia [Unknown]
  - Anal fistula [Unknown]
  - Nasopharyngitis [Unknown]
  - Malaise [Unknown]
  - Back pain [Unknown]
  - Chills [Unknown]
  - Headache [Unknown]
  - Off label use [Unknown]
